FAERS Safety Report 4766094-9 (Version None)
Quarter: 2005Q3

REPORT INFORMATION
  Report Type: 
  Country: None (occurrence: None)
  Receive Date: 20050912
  Receipt Date: 20050810
  Transmission Date: 20060218
  Serious: Yes (Life-Threatening, Hospitalization)
  Sender: FDA-Public Use
  Company Number: DE-MERCK-0508DEU00094

PATIENT
  Age: 51 Year
  Sex: Male
  Weight: 70 kg

DRUGS (8)
  1. ZETIA [Suspect]
     Indication: HYPERCHOLESTEROLAEMIA
     Route: 048
     Dates: start: 20050301, end: 20050725
  2. ESOMEPRAZOLE MAGNESIUM [Concomitant]
     Indication: GASTRITIS
     Route: 065
     Dates: start: 20050301
  3. LISINOPRIL [Concomitant]
     Indication: HYPERTENSION
     Route: 065
     Dates: start: 20040201
  4. GEMFIBROZIL [Concomitant]
     Route: 065
     Dates: start: 20050601, end: 20050725
  5. CLOPIDOGREL BISULFATE [Concomitant]
     Indication: ARTERIAL OCCLUSIVE DISEASE
     Route: 065
     Dates: start: 20030101
  6. FUROSEMIDE [Concomitant]
     Route: 065
     Dates: start: 20030301
  7. NEBIVOLOL HYDROCHLORIDE [Concomitant]
     Route: 065
     Dates: start: 20030301
  8. INSULIN [Concomitant]
     Route: 065

REACTIONS (1)
  - PANCREATITIS NECROTISING [None]
